FAERS Safety Report 9288894 (Version 4)
Quarter: 2013Q2

REPORT INFORMATION
  Report Type: Spontaneous
  Country: BR (occurrence: BR)
  Receive Date: 20130514
  Receipt Date: 20130620
  Transmission Date: 20140414
  Serious: Yes (Other)
  Sender: FDA-Public Use
  Company Number: PHHY2013BR046935

PATIENT
  Sex: Female
  Weight: 50 kg

DRUGS (5)
  1. RITALIN LA [Suspect]
     Indication: ATTENTION DEFICIT/HYPERACTIVITY DISORDER
     Dosage: 2 DF, DAILY
     Route: 048
     Dates: start: 201304
  2. RITALIN LA [Suspect]
     Indication: DEPRESSION
  3. RITALIN LA [Suspect]
     Indication: OFF LABEL USE
  4. FLUOXETINE [Concomitant]
     Indication: DEPRESSION
     Dosage: 3 DF, DAILY
     Route: 048
     Dates: start: 2012
  5. RIVOTRIL [Concomitant]
     Indication: DEPRESSION
     Dosage: 0.25 DF, DAILY
     Route: 048

REACTIONS (9)
  - Balance disorder [Not Recovered/Not Resolved]
  - Tremor [Not Recovered/Not Resolved]
  - Drug withdrawal syndrome [Not Recovered/Not Resolved]
  - Headache [Not Recovered/Not Resolved]
  - Fatigue [Not Recovered/Not Resolved]
  - Nausea [Not Recovered/Not Resolved]
  - Somnolence [Not Recovered/Not Resolved]
  - Disturbance in attention [Not Recovered/Not Resolved]
  - Drug ineffective [Unknown]
